FAERS Safety Report 5932248-9 (Version None)
Quarter: 2008Q4

REPORT INFORMATION
  Report Type: 
  Country: None (occurrence: None)
  Receive Date: 20081028
  Receipt Date: 20081023
  Transmission Date: 20090506
  Serious: Yes (Death, Life-Threatening)
  Sender: FDA-Public Use
  Company Number: JP-BRACCO-001204

PATIENT
  Age: 64 Year
  Sex: Male

DRUGS (2)
  1. IOPAMIDOL [Suspect]
     Indication: CARDIAC IMAGING PROCEDURE
     Dosage: 5 ML/SEC
     Route: 042
     Dates: start: 20081008, end: 20081008
  2. IOPAMIDOL [Suspect]
     Indication: CORONARY ARTERY STENOSIS
     Dosage: 5 ML/SEC
     Route: 042
     Dates: start: 20081008, end: 20081008

REACTIONS (7)
  - ANAPHYLACTOID REACTION [None]
  - BLOOD PRESSURE DECREASED [None]
  - CARDIAC ARREST [None]
  - LARYNGEAL OEDEMA [None]
  - MYOCARDIAL INFARCTION [None]
  - SHOCK [None]
  - VENTRICULAR TACHYCARDIA [None]
